FAERS Safety Report 15622505 (Version 2)
Quarter: 2018Q4

REPORT INFORMATION
  Report Type: Spontaneous
  Country: US (occurrence: US)
  Receive Date: 20181115
  Receipt Date: 20181213
  Transmission Date: 20190205
  Serious: Yes (Other)
  Sender: FDA-Public Use
  Company Number: US-BAUSCH-BL-2018-030785

PATIENT
  Sex: Female
  Weight: 81.72 kg

DRUGS (2)
  1. LISINOPRIL AND HYDROCHLORTIAZIDE [Concomitant]
     Active Substance: HYDROCHLOROTHIAZIDE\LISINOPRIL
     Indication: PRODUCT USED FOR UNKNOWN INDICATION
  2. OCEAN SALINE NASAL SPRAY [Suspect]
     Active Substance: SODIUM CHLORIDE
     Indication: NASAL DRYNESS
     Dosage: AS NEEDED
     Route: 045
     Dates: end: 201809

REACTIONS (7)
  - Product availability issue [Not Recovered/Not Resolved]
  - Staphylococcal infection [Not Recovered/Not Resolved]
  - Therapy cessation [Not Recovered/Not Resolved]
  - Hypoacusis [Recovering/Resolving]
  - Sinusitis [Not Recovered/Not Resolved]
  - Recalled product [Not Recovered/Not Resolved]
  - Tooth infection [Recovered/Resolved]

NARRATIVE: CASE EVENT DATE: 2018
